FAERS Safety Report 9375246 (Version 7)
Quarter: 2022Q3

REPORT INFORMATION
  Report Type: Spontaneous
  Country: CA (occurrence: CA)
  Receive Date: 20130628
  Receipt Date: 20220926
  Transmission Date: 20221026
  Serious: Yes (Death, Life-Threatening, Hospitalization, Congenital Anomaly, Other)
  Sender: FDA-Public Use
  Company Number: CA-UCBSA-089660

PATIENT
  Age: 27 Year
  Sex: Female

DRUGS (25)
  1. VIMPAT [Suspect]
     Active Substance: LACOSAMIDE
     Indication: Status epilepticus
     Dosage: UNKNOWN DOSE
  2. VIMPAT [Suspect]
     Active Substance: LACOSAMIDE
     Indication: Off label use
  3. KEPPRA [Suspect]
     Active Substance: LEVETIRACETAM
     Indication: Status epilepticus
     Dosage: UNKNOWN DOSE
  4. KEPPRA [Suspect]
     Active Substance: LEVETIRACETAM
     Indication: Off label use
     Dosage: 1000 MILLIGRAM, ONCE DAILY
     Route: 048
  5. KEPPRA [Suspect]
     Active Substance: LEVETIRACETAM
     Indication: Generalised tonic-clonic seizure
  6. CLOBAZAM [Suspect]
     Active Substance: CLOBAZAM
     Indication: Status epilepticus
     Dosage: UNKNOWN DOSE
  7. FORANE [Suspect]
     Active Substance: ISOFLURANE
     Indication: Status epilepticus
     Dosage: LIQUID INHALATION
  8. MIDAZOLAM [Suspect]
     Active Substance: MIDAZOLAM
     Indication: Status epilepticus
     Dosage: UNKNOWN DOSE
     Route: 030
  9. MIDAZOLAM [Suspect]
     Active Substance: MIDAZOLAM
     Dosage: REQUIRED DOSAGES UP TO 100 MG/HOUR
  10. TOPIRAMATE [Suspect]
     Active Substance: TOPIRAMATE
     Indication: Status epilepticus
     Dosage: UNKNOWN DOSE
  11. VALPROIC ACID [Suspect]
     Active Substance: VALPROIC ACID
     Indication: Status epilepticus
     Dosage: UNKNOWN DOSE
  12. DEXAMETHASONE [Suspect]
     Active Substance: DEXAMETHASONE
     Indication: Status epilepticus
     Dosage: UNK
  13. HUMAN IMMUNOGLOBULIN G [Suspect]
     Active Substance: HUMAN IMMUNOGLOBULIN G
     Indication: Product used for unknown indication
     Dosage: SOLUTION INTRAMUSCULAR
     Route: 030
  14. HUMAN IMMUNOGLOBULIN G [Suspect]
     Active Substance: HUMAN IMMUNOGLOBULIN G
     Dosage: SOLUTION INTRAVENOUS
     Route: 042
  15. MAGNESIUM SULFATE [Suspect]
     Active Substance: MAGNESIUM SULFATE
     Indication: Status epilepticus
     Dosage: UNKNOWN DOSE, POWDER FOR SOLUTION DIALYSIS
  16. PROPOFOL [Suspect]
     Active Substance: PROPOFOL
     Indication: Status epilepticus
     Dosage: TO BE INCREASED TO AS HIGH AS 10.7 MG/KG/HOUR
  17. PROPOFOL [Suspect]
     Active Substance: PROPOFOL
     Dosage: 13.0 MG/KG/HR
  18. LORAZEPAM [Suspect]
     Active Substance: LORAZEPAM
     Indication: Status epilepticus
     Dosage: UNKNOWN DOSE
  19. LORAZEPAM [Suspect]
     Active Substance: LORAZEPAM
     Indication: Generalised tonic-clonic seizure
  20. PHENYTOIN [Suspect]
     Active Substance: PHENYTOIN
     Indication: Status epilepticus
     Dosage: UNKNOWN DOSE
  21. OXCARBAZEPINE [Suspect]
     Active Substance: OXCARBAZEPINE
     Indication: Status epilepticus
     Dosage: 1 OT, UPTO 100 MG/HOUR
  22. KETAMINE HYDROCHLORIDE [Suspect]
     Active Substance: KETAMINE HYDROCHLORIDE
     Indication: Status epilepticus
     Dosage: UNKNOWN DOSE
     Route: 030
  23. PENTOBARBITAL [Suspect]
     Active Substance: PENTOBARBITAL
     Indication: Status epilepticus
     Dosage: UNKNOWN DOSE
     Route: 041
  24. PENTOBARBITAL [Suspect]
     Active Substance: PENTOBARBITAL
     Indication: Generalised tonic-clonic seizure
  25. METHYLPREDNISOLONE [Concomitant]
     Active Substance: METHYLPREDNISOLONE
     Indication: Product used for unknown indication

REACTIONS (22)
  - Multiple-drug resistance [Unknown]
  - Propofol infusion syndrome [Recovered/Resolved]
  - Gene mutation [Fatal]
  - Mitochondrial DNA mutation [Fatal]
  - Arrhythmia [Fatal]
  - Blood creatine phosphokinase increased [Fatal]
  - Metabolic acidosis [Fatal]
  - Shock [Fatal]
  - Blood gases abnormal [Fatal]
  - Blood lactic acid increased [Fatal]
  - Electrocardiogram QT prolonged [Fatal]
  - Status epilepticus [Fatal]
  - Antinuclear antibody positive [Fatal]
  - CSF oligoclonal band present [Fatal]
  - Drug hypersensitivity [Fatal]
  - Encephalitis [Fatal]
  - Partial seizures [Fatal]
  - Pleocytosis [Fatal]
  - Rash [Fatal]
  - Product substitution issue [Unknown]
  - Drug ineffective for unapproved indication [Unknown]
  - Off label use [Unknown]

NARRATIVE: CASE EVENT DATE: 20110101
